FAERS Safety Report 6170487-5 (Version None)
Quarter: 2009Q2

REPORT INFORMATION
  Report Type: 
  Country: None (occurrence: None)
  Receive Date: 20090428
  Receipt Date: 20090423
  Transmission Date: 20091009
  Serious: No
  Sender: FDA-Public Use
  Company Number: US-B.I. PHARMACEUTICALS,INC./RIDGEFIELD-2009-BP-05196BP

PATIENT
  Sex: Female

DRUGS (3)
  1. MIRAPEX [Suspect]
     Indication: RESTLESS LEGS SYNDROME
  2. DARVOCET-N 100 [Concomitant]
     Indication: RESTLESS LEGS SYNDROME
  3. REQUIP [Concomitant]
     Indication: RESTLESS LEGS SYNDROME

REACTIONS (1)
  - DRUG INEFFECTIVE [None]
